FAERS Safety Report 5318721-5 (Version None)
Quarter: 2007Q2

REPORT INFORMATION
  Report Type: 
  Country: None (occurrence: None)
  Receive Date: 20070503
  Receipt Date: 20070424
  Transmission Date: 20071010
  Serious: Yes (Other)
  Sender: FDA-Public Use
  Company Number: IMP_02837_2007

PATIENT
  Age: 39 Year
  Sex: Male

DRUGS (8)
  1. MINOCYCLINE HCL [Suspect]
     Indication: ACNE
     Dosage: (50 MG BID)
  2. TETRACYCLINE [Suspect]
  3. DIDANOSINE [Concomitant]
  4. STAVUDINE [Concomitant]
  5. NEVIRAPINE [Concomitant]
  6. LOPINAVIR [Concomitant]
  7. TENOFOVIR [Concomitant]
  8. ALUMINUM HYDROXIDE GEL [Concomitant]

REACTIONS (3)
  - BLOOD LACTIC ACID INCREASED [None]
  - HYPERCHOLESTEROLAEMIA [None]
  - HYPERTRIGLYCERIDAEMIA [None]
